FAERS Safety Report 16331114 (Version 1)
Quarter: 2019Q2

REPORT INFORMATION
  Report Type: Spontaneous
  Country: US (occurrence: US)
  Receive Date: 20190517
  Receipt Date: 20190517
  Transmission Date: 20190711
  Serious: Yes (Hospitalization)
  Sender: FDA-Public Use
  Company Number: None

PATIENT
  Sex: Female

DRUGS (10)
  1. POTASSIUM CHLORIDE. [Concomitant]
     Active Substance: POTASSIUM CHLORIDE
  2. LOSARTAN. [Concomitant]
     Active Substance: LOSARTAN
  3. OMEPRAZOLE. [Concomitant]
     Active Substance: OMEPRAZOLE
  4. MIRTAZAPINE. [Concomitant]
     Active Substance: MIRTAZAPINE
  5. GABAPENTIN. [Concomitant]
     Active Substance: GABAPENTIN
  6. ALLOPURINOL. [Concomitant]
     Active Substance: ALLOPURINOL
  7. INLYTA [Suspect]
     Active Substance: AXITINIB
     Indication: RENAL CANCER
     Route: 048
  8. METFORMIN [Concomitant]
     Active Substance: METFORMIN HYDROCHLORIDE
  9. WARFARIN SODIUM. [Concomitant]
     Active Substance: WARFARIN SODIUM
  10. LEVOTHYROXINE. [Concomitant]
     Active Substance: LEVOTHYROXINE

REACTIONS (5)
  - Diarrhoea [None]
  - Weight decreased [None]
  - Fatigue [None]
  - Decreased appetite [None]
  - Dehydration [None]
